FAERS Safety Report 6280025-4 (Version None)
Quarter: 2009Q3

REPORT INFORMATION
  Report Type: 
  Country: None (occurrence: None)
  Receive Date: 20090723
  Receipt Date: 20090713
  Transmission Date: 20100115
  Serious: Yes (Death)
  Sender: FDA-Public Use
  Company Number: NL-ELI_LILLY_AND_COMPANY-NL200905004432

PATIENT
  Sex: Male

DRUGS (3)
  1. CYMBALTA [Suspect]
     Indication: NEGATIVE THOUGHTS
     Dosage: 30 MG, DAILY (1/D)
     Route: 065
     Dates: start: 20080801, end: 20090121
  2. CLOZAPINE [Concomitant]
     Indication: PSYCHOTIC DISORDER
     Dosage: 400 MG, UNKNOWN
     Route: 065
     Dates: start: 20081128, end: 20090121
  3. IMPROMEN /00568801/ [Concomitant]

REACTIONS (2)
  - ACUTE RESPIRATORY DISTRESS SYNDROME [None]
  - AGRANULOCYTOSIS [None]
